FAERS Safety Report 15304826 (Version 2)
Quarter: 2018Q4

REPORT INFORMATION
  Report Type: Report from Study
  Country: IT (occurrence: IT)
  Receive Date: 20180822
  Receipt Date: 20181005
  Transmission Date: 20190204
  Serious: Yes (Life-Threatening)
  Sender: FDA-Public Use
  Company Number: IT-TEVA-2018-IT-946323

PATIENT
  Age: 10 Year
  Sex: Male
  Weight: 17 kg

DRUGS (5)
  1. RIVOTRIL [Suspect]
     Active Substance: CLONAZEPAM
     Indication: EPILEPSY
     Dosage: 12 GTT DAILY;
     Route: 048
     Dates: start: 20180123
  2. LUMINALE [Suspect]
     Active Substance: PHENOBARBITAL
     Indication: EPILEPSY
     Route: 065
  3. TOPIRAMATE. [Suspect]
     Active Substance: TOPIRAMATE
     Indication: EPILEPSY
     Dosage: 100 MILLIGRAM DAILY;
     Route: 048
  4. FRISIUM 10 MG CAPSULE RIGIDE [Suspect]
     Active Substance: CLOBAZAM
     Indication: EPILEPSY
     Dosage: 15 MILLIGRAM DAILY;
     Route: 048
  5. DINTOINA 100 MG COMPRESSE RIVESTITE [Suspect]
     Active Substance: PHENYTOIN SODIUM
     Indication: EPILEPSY
     Dosage: 150 MILLIGRAM DAILY;
     Route: 048

REACTIONS (7)
  - Hypocalcaemia [Recovering/Resolving]
  - Hyperchloraemia [Recovering/Resolving]
  - Poor feeding infant [Recovering/Resolving]
  - Hypernatraemia [Recovering/Resolving]
  - Sopor [Recovering/Resolving]
  - Hypotonia [Recovering/Resolving]
  - Hypokalaemia [Recovering/Resolving]

NARRATIVE: CASE EVENT DATE: 20180124
